FAERS Safety Report 11878554 (Version 6)
Quarter: 2016Q1

REPORT INFORMATION
  Report Type: Spontaneous
  Country: US (occurrence: US)
  Receive Date: 20151230
  Receipt Date: 20160301
  Transmission Date: 20160526
  Serious: Yes (Death, Other)
  Sender: FDA-Public Use
  Company Number: US-009507513-1512USA013532

PATIENT
  Age: 77 Year
  Sex: Female

DRUGS (5)
  1. EMEND [Suspect]
     Active Substance: APREPITANT
     Dosage: UNK
     Route: 048
     Dates: start: 201510
  2. EMEND [Suspect]
     Active Substance: APREPITANT
     Indication: VOMITING
     Dosage: DAY 2, 80 MG, UNK
     Route: 048
     Dates: start: 201410, end: 201504
  3. COUMADIN [Concomitant]
     Active Substance: WARFARIN SODIUM
     Dosage: UNK
     Route: 048
  4. EMEND [Suspect]
     Active Substance: APREPITANT
     Dosage: DAY 3, 80 MG, UNK
     Dates: start: 201410, end: 201504
  5. EMEND [Suspect]
     Active Substance: APREPITANT
     Indication: NAUSEA
     Dosage: DAY 1, 125 MG, UNK
     Route: 048
     Dates: start: 201410, end: 201504

REACTIONS (2)
  - Death [Fatal]
  - Ovarian cancer recurrent [Not Recovered/Not Resolved]

NARRATIVE: CASE EVENT DATE: 201510
